FAERS Safety Report 17293616 (Version 6)
Quarter: 2020Q3

REPORT INFORMATION
  Report Type: Report from Study
  Country: MX (occurrence: MX)
  Receive Date: 20200121
  Receipt Date: 20200820
  Transmission Date: 20201102
  Serious: No
  Sender: FDA-Public Use
  Company Number: MX-SA-2018SA328570

PATIENT

DRUGS (2)
  1. ALEMTUZUMAB [Suspect]
     Active Substance: ALEMTUZUMAB
     Indication: MULTIPLE SCLEROSIS
     Dosage: 12 MG, QD, 12 MG/1.2 ML,
     Route: 042
     Dates: start: 20171004, end: 20171008
  2. ALEMTUZUMAB [Suspect]
     Active Substance: ALEMTUZUMAB
     Dosage: 12 MG, QD,12 MG/1.2 ML,
     Route: 042
     Dates: start: 20190316, end: 20190318

REACTIONS (7)
  - Eosinophil percentage decreased [Unknown]
  - Off label use [Unknown]
  - Neutrophil count increased [Unknown]
  - Urticaria [Recovering/Resolving]
  - Mean platelet volume abnormal [Unknown]
  - Lymphocyte percentage decreased [Unknown]
  - Fatigue [Not Recovered/Not Resolved]

NARRATIVE: CASE EVENT DATE: 20171014
